FAERS Safety Report 8338541-7 (Version None)
Quarter: 2012Q2

REPORT INFORMATION
  Report Type: 
  Country: None (occurrence: None)
  Receive Date: 20120504
  Receipt Date: 20120424
  Transmission Date: 20120825
  Serious: Yes (Other)
  Sender: FDA-Public Use
  Company Number: HU-BAXTER-2012BAX004257

PATIENT
  Age: 60 Year
  Sex: Female

DRUGS (6)
  1. DIANEAL PD-1 W/ DEXTROSE 1.5% IN PLASTIC CONTAINER [Suspect]
     Route: 033
     Dates: start: 20050506
  2. VITAMIN D [Concomitant]
     Route: 065
  3. ERYTHROPOETIN [Concomitant]
     Route: 065
  4. EXTRANEAL [Suspect]
     Route: 033
     Dates: start: 20050506
  5. INSULIN [Concomitant]
     Route: 065
  6. IRON [Concomitant]
     Route: 042

REACTIONS (2)
  - MYOCARDIAL ISCHAEMIA [None]
  - MYOCARDIAL INFARCTION [None]
